FAERS Safety Report 7359625-6 (Version None)
Quarter: 2011Q1

REPORT INFORMATION
  Report Type: 
  Country: None (occurrence: None)
  Receive Date: 20110317
  Receipt Date: 20100301
  Transmission Date: 20110831
  Serious: No
  Sender: FDA-Public Use
  Company Number: US-PFIZER INC-2005052333

PATIENT
  Sex: Female
  Weight: 65.76 kg

DRUGS (20)
  1. NORVASC [Suspect]
     Indication: BLOOD PRESSURE INADEQUATELY CONTROLLED
     Route: 048
     Dates: start: 20050318, end: 20050325
  2. LASIX [Concomitant]
     Indication: RENAL DISORDER
     Dosage: UNK
  3. CRESTOR [Concomitant]
     Dosage: UNK
  4. ISOSORBIDE [Concomitant]
     Dosage: UNK
  5. NORVASC [Suspect]
     Indication: ISCHAEMIA
  6. FUROSEMIDE [Concomitant]
     Indication: RENAL DISORDER
     Dosage: UNK
     Route: 065
  7. ATENOLOL [Concomitant]
     Dosage: UNK
     Route: 065
  8. SIMVASTATIN [Concomitant]
     Dosage: UNK
     Route: 065
  9. SENSIPAR [Concomitant]
     Dosage: 81 MG, UNK
  10. NORVASC [Suspect]
     Indication: HYPERTENSION
     Dosage: 7.5 MG, DAILY
     Route: 048
     Dates: start: 20100101, end: 20100226
  11. LEVOTHYROXINE [Concomitant]
     Dosage: UNK
     Route: 065
  12. AMITRIPTYLINE HCL [Concomitant]
     Dosage: 25 MG, UNK
     Route: 065
  13. ESOMEPRAZOLE MAGNESIUM [Concomitant]
     Dosage: UNK
     Route: 065
  14. NORCO [Concomitant]
     Indication: ARTHRITIS
     Dosage: UNK
  15. VALSARTAN [Concomitant]
     Dosage: UNK
  16. NEXIUM [Concomitant]
     Dosage: UNK
  17. LISINOPRIL [Concomitant]
     Dosage: UNK
     Route: 065
  18. INSPRA [Concomitant]
     Dosage: UNK
  19. SYNTHROID [Concomitant]
     Dosage: UNK
  20. VITAMIN D [Concomitant]
     Dosage: UNK

REACTIONS (1)
  - OEDEMA PERIPHERAL [None]
